FAERS Safety Report 6269051-9 (Version None)
Quarter: 2009Q3

REPORT INFORMATION
  Report Type: 
  Country: None (occurrence: None)
  Receive Date: 20090715
  Receipt Date: 20090703
  Transmission Date: 20100115
  Serious: Yes (Other)
  Sender: FDA-Public Use
  Company Number: PT-PFIZER INC-2009236735

PATIENT

DRUGS (2)
  1. VFEND [Suspect]
  2. ANIDULAFUNGIN [Concomitant]

REACTIONS (2)
  - DRUG EFFECT DECREASED [None]
  - HAEMOPTYSIS [None]
